FAERS Safety Report 6102984-2 (Version None)
Quarter: 2009Q1

REPORT INFORMATION
  Report Type: 
  Country: None (occurrence: None)
  Receive Date: 20090305
  Receipt Date: 20090224
  Transmission Date: 20090719
  Serious: Yes (Other)
  Sender: FDA-Public Use
  Company Number: PHEH2009US02039

PATIENT
  Sex: Male

DRUGS (2)
  1. EXELON [Suspect]
     Dosage: 1 DF, BID
     Route: 048
  2. EXELON [Suspect]
     Route: 062

REACTIONS (3)
  - ABDOMINAL DISTENSION [None]
  - DEPRESSION [None]
  - DISORIENTATION [None]
